FAERS Safety Report 20680656 (Version 2)
Quarter: 2022Q2

REPORT INFORMATION
  Report Type: Spontaneous
  Country: US (occurrence: US)
  Receive Date: 20220406
  Receipt Date: 20220413
  Transmission Date: 20220720
  Serious: Yes (Hospitalization)
  Sender: FDA-Public Use
  Company Number: US-TEVA-2022-US-2023663

PATIENT
  Age: 12 Year
  Sex: Female

DRUGS (5)
  1. AMOXICILLIN [Suspect]
     Active Substance: AMOXICILLIN
     Indication: Scarlet fever
     Dosage: DURING INITIAL TREATMENT FOR SCARLET FEVER
     Route: 065
  2. AMOXICILLIN [Suspect]
     Active Substance: AMOXICILLIN
     Indication: Allergy test
     Route: 048
  3. PENICILLIN G [Concomitant]
     Active Substance: PENICILLIN G
     Indication: Allergy test
     Route: 065
  4. BENZYLPENICILLOYL POLYLYSINE [Concomitant]
     Active Substance: BENZYLPENICILLOYL POLYLYSINE
     Indication: Allergy test
     Route: 065
  5. AMPICILLIN [Concomitant]
     Active Substance: AMPICILLIN
     Indication: Allergy test
     Route: 065

REACTIONS (3)
  - Anaphylactoid reaction [Recovered/Resolved]
  - Type III immune complex mediated reaction [Recovered/Resolved]
  - Type IV hypersensitivity reaction [Recovered/Resolved]
